FAERS Safety Report 21634828 (Version 1)
Quarter: 2022Q4

REPORT INFORMATION
  Report Type: Report from Study
  Country: FR (occurrence: FR)
  Receive Date: 20221123
  Receipt Date: 20221123
  Transmission Date: 20230113
  Serious: Yes (Other)
  Sender: FDA-Public Use
  Company Number: FR-MYLANLABS-2022M1131432

PATIENT

DRUGS (9)
  1. CISPLATIN [Suspect]
     Active Substance: CISPLATIN
     Indication: Hepatoblastoma
     Dosage: 80 MILLIGRAM/SQ. METER, SIOPEL 4 CHEMOTHERAPY REGIMEN: CONTINUOUS 24-HOUR INFUSION (CUMULATIVE DOSE
     Route: 042
  2. CARBOPLATIN [Suspect]
     Active Substance: CARBOPLATIN
     Indication: Hepatoblastoma
     Dosage: UNK, CYCLE, AUC 6.6 MG/ML PER MIN IN CYCLE A 1 HOUR INFUSION EVERY 3 WEEKS
     Route: 042
  3. CARBOPLATIN [Suspect]
     Active Substance: CARBOPLATIN
     Dosage: UNK, CYCLE, AUC 10.6 MG/ML PER MIN IN CYCLE B 1 HOUR INFUSION EVERY 3 WEEKS
     Route: 042
  4. DOXORUBICIN [Suspect]
     Active Substance: DOXORUBICIN
     Indication: Hepatoblastoma
     Dosage: 60 MILLIGRAM/SQ. METER, CYCLE,SIOPEL 4 CHEMOTHERAPY REGIMEN: 60 MG/M2 IN CYCLE A CONTINUOUS 48-HOUR
     Route: 042
  5. DOXORUBICIN [Suspect]
     Active Substance: DOXORUBICIN
     Dosage: 50 MILLIGRAM/SQ. METER, CYCLE,SIOPEL 4 CHEMOTHERAPY REGIMEN: 50 MG/M2 IN CYCLE B CONTINUOUS 48-HOUR
     Route: 042
  6. DOXORUBICIN [Suspect]
     Active Substance: DOXORUBICIN
     Dosage: 40 MILLIGRAM/SQ. METER, CYCLE,SIOPEL 4 CHEMOTHERAPY REGIMEN: 40 MG/M2 IN CYCLE C CONTINUOUS 48-HOUR
     Route: 042
  7. TACROLIMUS [Suspect]
     Active Substance: TACROLIMUS
     Indication: Product used for unknown indication
     Dosage: UNK
     Route: 065
  8. CAMPTOSAR [Suspect]
     Active Substance: IRINOTECAN HYDROCHLORIDE
     Indication: Product used for unknown indication
     Dosage: UNK
     Route: 065
  9. IRINOTECAN HYDROCHLORIDE [Suspect]
     Active Substance: IRINOTECAN HYDROCHLORIDE
     Indication: Product used for unknown indication
     Dosage: 404 MILLIGRAM/SQ. METER
     Route: 065

REACTIONS (1)
  - Renal impairment [Unknown]
